FAERS Safety Report 24653424 (Version 1)
Quarter: 2024Q4

REPORT INFORMATION
  Report Type: Spontaneous
  Country: GB (occurrence: GB)
  Receive Date: 20241122
  Receipt Date: 20241122
  Transmission Date: 20250114
  Serious: Yes (Death, Other)
  Sender: ADC THERAPEUTICS
  Company Number: GB-BIOVITRUM-2024-GB-012403

PATIENT
  Sex: Male

DRUGS (2)
  1. ZYNLONTA [Suspect]
     Active Substance: LONCASTUXIMAB TESIRINE-LPYL
     Indication: Diffuse large B-cell lymphoma
     Dosage: UNK
     Dates: start: 20240521, end: 20240521
  2. ZYNLONTA [Suspect]
     Active Substance: LONCASTUXIMAB TESIRINE-LPYL
     Dosage: UNK
     Dates: start: 20240611, end: 20240611

REACTIONS (3)
  - Disease progression [Fatal]
  - Prostate cancer [Fatal]
  - Diffuse large B-cell lymphoma [Fatal]
